FAERS Safety Report 8065640-X (Version None)
Quarter: 2012Q1

REPORT INFORMATION
  Report Type: 
  Country: None (occurrence: None)
  Receive Date: 20120124
  Receipt Date: 20120116
  Transmission Date: 20120608
  Serious: Yes (Hospitalization)
  Sender: FDA-Public Use
  Company Number: US-BAYER-2011-107943

PATIENT
  Age: 30 Year
  Sex: Female
  Weight: 104.76 kg

DRUGS (9)
  1. IBUPROFEN [Concomitant]
     Dosage: UNK UNK, PRN
  2. INDOMETHACIN [Concomitant]
     Dosage: UNK UNK, TID
     Route: 048
  3. ALLEGRA [Concomitant]
     Indication: SEASONAL ALLERGY
     Dosage: UNK
     Dates: start: 20060101
  4. DROSPIRENONE AND ETHINYL ESTRADIOL [Suspect]
     Indication: CONTRACEPTION
     Dosage: UNK
     Dates: start: 20050301, end: 20100301
  5. YAZ [Suspect]
     Indication: CONTRACEPTION
     Dosage: UNK
     Dates: start: 20050301, end: 20100301
  6. PROTONIX [Concomitant]
     Dosage: UNK UNK, QD
     Route: 048
  7. YASMIN [Suspect]
     Indication: CONTRACEPTION
     Dosage: UNK
     Dates: start: 20050301, end: 20100301
  8. ALPRAZOLAM [Concomitant]
     Indication: INSOMNIA
     Dosage: UNK
     Dates: start: 20060101
  9. XANAX [Concomitant]
     Dosage: 0.25 MG, UNK
     Route: 048

REACTIONS (4)
  - ABDOMINAL PAIN UPPER [None]
  - CHOLELITHIASIS [None]
  - BILIARY COLIC [None]
  - DEHYDRATION [None]
